FAERS Safety Report 4350208-9 (Version None)
Quarter: 2004Q2

REPORT INFORMATION
  Report Type: 
  Country: None (occurrence: None)
  Receive Date: 20040428
  Receipt Date: 20040409
  Transmission Date: 20050107
  Serious: No
  Sender: FDA-Public Use
  Company Number: 2004-BP-01330NB

PATIENT
  Age: 70 Year
  Sex: Female

DRUGS (9)
  1. MOBIC [Suspect]
     Indication: RHEUMATOID ARTHRITIS
     Dosage: 10 MG
     Route: 048
     Dates: start: 20040106, end: 20040212
  2. RHEUMATREX [Concomitant]
  3. FOLIAMIN (FOLIC ACID) [Concomitant]
  4. PREDNISOLONE [Concomitant]
  5. GLIMICRON (GLICLAZIDE) [Concomitant]
  6. BASEN (VOGLIBOSE) [Concomitant]
  7. ALFAROL (ALFACALCIDOL) [Concomitant]
  8. CALCIUM LACTATE (CALSIUM LACTATE) [Concomitant]
  9. ACTONEL [Concomitant]

REACTIONS (3)
  - BACK PAIN [None]
  - CYSTITIS HAEMORRHAGIC [None]
  - THROMBOSIS [None]
